FAERS Safety Report 8756827 (Version 1)
Quarter: 2012Q4

REPORT INFORMATION
  Report Type: 
  Country: US (occurrence: US)
  Receive Date: 20120828
  Receipt Date: 20120828
  Transmission Date: 20130627
  Serious: No
  Sender: FDA-Public Use
  Company Number: US-B.I. PHARMACEUTICALS,INC./RIDGEFIELD-2012-BP-20602PF

PATIENT
  Sex: Female

DRUGS (9)
  1. SPIRIVA [Suspect]
  2. CALTRATE [Concomitant]
  3. ADVAIR [Concomitant]
  4. PROVENTIL [Concomitant]
  5. ALBUTEROL [Concomitant]
  6. XANAX [Concomitant]
  7. PREDNISONE [Concomitant]
  8. CHANTIX [Concomitant]
  9. CHANTIX [Concomitant]
     Dosage: 1 mg

REACTIONS (1)
  - Pain [Unknown]
